FAERS Safety Report 6575934-2 (Version None)
Quarter: 2010Q1

REPORT INFORMATION
  Report Type: 
  Country: None (occurrence: None)
  Receive Date: 20100209
  Receipt Date: 20100127
  Transmission Date: 20100710
  Serious: Yes (Hospitalization, Other)
  Sender: FDA-Public Use
  Company Number: US-ELI_LILLY_AND_COMPANY-US200911003276

PATIENT
  Sex: Female
  Weight: 44.444 kg

DRUGS (14)
  1. FORTEO [Suspect]
     Indication: OSTEOPOROSIS
     Dosage: 20 UG, DAILY (1/D)
  2. LEVOTHYROXINE SODIUM [Concomitant]
     Dosage: 0.075 MG, UNK
  3. NEXIUM [Concomitant]
     Dosage: 40 MG, UNK
  4. CLORAZEPATE DIPOTASSIUM [Concomitant]
     Dosage: 7.3 MG, UNK
  5. LOVASTATIN [Concomitant]
     Dosage: 40 MG, UNK
  6. FLOVENT [Concomitant]
     Dosage: 44 UG, UNK
  7. PROAIR HFA [Concomitant]
  8. SPIRIVA [Concomitant]
  9. MUCINEX [Concomitant]
  10. CALCIUM [Concomitant]
  11. OCEAN [Concomitant]
  12. VITAMINS [Concomitant]
  13. MYLANTA [Concomitant]
  14. BENEFIBER /01648102/ [Concomitant]

REACTIONS (2)
  - FALL [None]
  - FEMORAL NECK FRACTURE [None]
